FAERS Safety Report 5710138-4 (Version None)
Quarter: 2008Q2

REPORT INFORMATION
  Report Type: 
  Country: None (occurrence: None)
  Receive Date: 20080418
  Receipt Date: 20071116
  Transmission Date: 20081010
  Serious: No
  Sender: FDA-Public Use
  Company Number: US-ASTRAZENECA-2007UW26612

PATIENT
  Age: 36 Year
  Sex: Female
  Weight: 95.3 kg

DRUGS (1)
  1. TOPROL-XL [Suspect]
     Indication: CARDIAC FLUTTER
     Route: 048
     Dates: start: 20050101

REACTIONS (4)
  - DRY EYE [None]
  - EYE IRRITATION [None]
  - EYE SWELLING [None]
  - RASH [None]
